FAERS Safety Report 8617224-X (Version None)
Quarter: 2012Q3

REPORT INFORMATION
  Report Type: 
  Country: None (occurrence: None)
  Receive Date: 20120823
  Receipt Date: 20120814
  Transmission Date: 20120928
  Serious: Yes (Hospitalization, Other)
  Sender: FDA-Public Use
  Company Number: US-ASTRAZENECA-2011SE08691

PATIENT
  Age: 52 Year
  Sex: Female
  Weight: 72.6 kg

DRUGS (8)
  1. CYMBALTA [Concomitant]
  2. SEROQUEL [Suspect]
     Route: 048
  3. SEROQUEL [Suspect]
     Route: 048
  4. KLONOPIN [Concomitant]
  5. SEROQUEL [Suspect]
     Indication: DEPRESSION
     Route: 048
  6. ESTROGEN [Concomitant]
  7. SEROQUEL [Suspect]
     Indication: BIPOLAR I DISORDER
     Route: 048
  8. OXYCODONE HCL [Concomitant]

REACTIONS (5)
  - HYPOACUSIS [None]
  - CONVULSION [None]
  - UPPER LIMB FRACTURE [None]
  - SUICIDAL IDEATION [None]
  - INTENTIONAL DRUG MISUSE [None]
